FAERS Safety Report 15725999 (Version 1)
Quarter: 2018Q4

REPORT INFORMATION
  Report Type: Spontaneous
  Country: US (occurrence: US)
  Receive Date: 20181216
  Receipt Date: 20181216
  Transmission Date: 20190205
  Serious: No
  Sender: FDA-Public Use
  Company Number: US-SUPERNUS PHARMACEUTICALS, INC.-2018SUP00047

PATIENT
  Sex: Female
  Weight: 97.96 kg

DRUGS (11)
  1. TROKENDI XR [Suspect]
     Active Substance: TOPIRAMATE
     Indication: HEADACHE
  2. TYLENOL WITH CODEINE [Concomitant]
     Active Substance: ACETAMINOPHEN\CODEINE PHOSPHATE
  3. XANAX [Concomitant]
     Active Substance: ALPRAZOLAM
  4. TROKENDI XR [Suspect]
     Active Substance: TOPIRAMATE
     Indication: MIGRAINE
     Dosage: 50 MG, 1X/DAY
     Route: 048
  5. TROKENDI XR [Suspect]
     Active Substance: TOPIRAMATE
     Indication: MIGRAINE
     Dosage: 100 MG, 1X/DAY
     Route: 048
  6. TROKENDI XR [Suspect]
     Active Substance: TOPIRAMATE
     Indication: HEADACHE
  7. AMBIEN [Concomitant]
     Active Substance: ZOLPIDEM TARTRATE
  8. TROKENDI XR [Suspect]
     Active Substance: TOPIRAMATE
     Indication: MIGRAINE
     Dosage: 200 MG, 1X/DAY
     Route: 048
  9. IRON [Concomitant]
     Active Substance: IRON
  10. METHYLFOLATE [Concomitant]
     Active Substance: LEVOMEFOLATE CALCIUM
  11. TROKENDI XR [Suspect]
     Active Substance: TOPIRAMATE
     Indication: HEADACHE
     Dosage: 150 MG, 1X/DAY
     Route: 048

REACTIONS (7)
  - Headache [Not Recovered/Not Resolved]
  - Insomnia [Not Recovered/Not Resolved]
  - Depression [Not Recovered/Not Resolved]
  - Drug ineffective [Not Recovered/Not Resolved]
  - Mania [Not Recovered/Not Resolved]
  - Somnolence [Unknown]
  - Performance status decreased [Unknown]
